FAERS Safety Report 23735912 (Version 2)
Quarter: 2024Q3

REPORT INFORMATION
  Report Type: Report from Study
  Country: GR (occurrence: GR)
  Receive Date: 20240412
  Receipt Date: 20240923
  Transmission Date: 20241017
  Serious: Yes (Death, Hospitalization, Other)
  Sender: HELSINN HEALTHCARE
  Company Number: GR-HELSINN-2021GR023788

PATIENT
  Age: 84 Year
  Sex: Male

DRUGS (2)
  1. MECHLORETHAMINE HYDROCHLORIDE [Suspect]
     Active Substance: MECHLORETHAMINE HYDROCHLORIDE
     Indication: Cutaneous T-cell lymphoma
     Dosage: UNK, QOD
     Route: 003
     Dates: start: 2019, end: 20211015
  2. MECHLORETHAMINE HYDROCHLORIDE [Suspect]
     Active Substance: MECHLORETHAMINE HYDROCHLORIDE
     Dosage: UNK, UNKNOWN
     Route: 065
     Dates: end: 2022

REACTIONS (5)
  - Pulmonary embolism [Fatal]
  - Carotid artery occlusion [Unknown]
  - Expired product administered [Recovered/Resolved]
  - Off label use [Not Recovered/Not Resolved]
  - Therapy interrupted [Unknown]

NARRATIVE: CASE EVENT DATE: 20210924
